FAERS Safety Report 6667242-6 (Version None)
Quarter: 2010Q2

REPORT INFORMATION
  Report Type: 
  Country: None (occurrence: None)
  Receive Date: 20100405
  Receipt Date: 20100323
  Transmission Date: 20101027
  Serious: Yes (Other)
  Sender: FDA-Public Use
  Company Number: JP-PFIZER INC-2010041579

PATIENT
  Age: 40 Year
  Sex: Female

DRUGS (2)
  1. CELECOX [Suspect]
     Indication: RHEUMATOID ARTHRITIS
     Dosage: 200 MG, 2X/DAY
     Route: 048
     Dates: start: 20100204, end: 20100305
  2. AZULFIDINE - SLOW RELEASE [Concomitant]
     Dosage: UNK
     Route: 048
     Dates: start: 20100212, end: 20100305

REACTIONS (2)
  - LOCAL SWELLING [None]
  - RASH [None]
